FAERS Safety Report 5287304-8 (Version None)
Quarter: 2007Q2

REPORT INFORMATION
  Report Type: 
  Country: None (occurrence: None)
  Receive Date: 20070404
  Receipt Date: 20070326
  Transmission Date: 20071010
  Serious: Yes (Hospitalization)
  Sender: FDA-Public Use
  Company Number: IL-PFIZER INC-2007025754

PATIENT
  Age: 42 Year
  Sex: Male

DRUGS (2)
  1. LIPITOR [Suspect]
  2. ACETYLSALICYLIC ACID SRT [Concomitant]

REACTIONS (1)
  - HAEMORRHAGIC STROKE [None]
